FAERS Safety Report 6478783-9 (Version None)
Quarter: 2009Q4

REPORT INFORMATION
  Report Type: 
  Country: None (occurrence: None)
  Receive Date: 20091207
  Receipt Date: 20091203
  Transmission Date: 20100525
  Serious: Yes (Death)
  Sender: FDA-Public Use
  Company Number: JP-GENENTECH-295029

PATIENT
  Sex: Male

DRUGS (3)
  1. GRTPA [Suspect]
     Indication: CEREBRAL INFARCTION
     Dosage: 2018 IU, UNK
     Route: 042
     Dates: start: 20091118, end: 20091118
  2. GASTER [Concomitant]
     Indication: DRUG USE FOR UNKNOWN INDICATION
     Dosage: 40 MG, UNK
     Route: 042
     Dates: start: 20091118
  3. RADICUT [Concomitant]
     Indication: DRUG USE FOR UNKNOWN INDICATION
     Dosage: 60 MG, UNK
     Route: 041
     Dates: start: 20091118

REACTIONS (1)
  - ANEURYSM RUPTURED [None]
